FAERS Safety Report 8727747 (Version 3)
Quarter: 2013Q2

REPORT INFORMATION
  Report Type: Spontaneous
  Country: US (occurrence: None)
  Receive Date: 20120731
  Receipt Date: 20130603
  Transmission Date: 20140414
  Serious: Yes (Hospitalization)
  Sender: FDA-Public Use
  Company Number: IMP_05937_2012

PATIENT
  Age: 9 Year
  Sex: Male

DRUGS (4)
  1. CARBIDOPA + LEVODOPA [Suspect]
     Indication: DYSTONIA
     Dosage: (TITRATED UP TO 10/100 MG 3 TIMES DAILY)
  2. BACLOFEN [Concomitant]
  3. CLONAZEPAM [Concomitant]
  4. TRIHEXYPHENIDYL HYDROCHLORIDE [Concomitant]

REACTIONS (6)
  - NEUROLEPTIC MALIGNANT SYNDROME [None]
  - RESPIRATORY DISTRESS [None]
  - ILEUS [None]
  - Dystonia [None]
  - Dehydration [None]
  - Transaminases increased [None]
